FAERS Safety Report 6623772-4 (Version None)
Quarter: 2010Q1

REPORT INFORMATION
  Report Type: 
  Country: None (occurrence: None)
  Receive Date: 20100310
  Receipt Date: 20091119
  Transmission Date: 20100710
  Serious: No
  Sender: FDA-Public Use
  Company Number: US-BIOGENIDEC-2009BI037715

PATIENT
  Age: 49 Year
  Sex: Female

DRUGS (1)
  1. AVONEX [Suspect]
     Indication: MULTIPLE SCLEROSIS
     Route: 030
     Dates: start: 20080520

REACTIONS (10)
  - ANXIETY [None]
  - CHILLS [None]
  - FATIGUE [None]
  - HEADACHE [None]
  - INJECTION SITE HAEMATOMA [None]
  - INJECTION SITE PAIN [None]
  - INSOMNIA [None]
  - LIMB DISCOMFORT [None]
  - PAIN [None]
  - PYREXIA [None]
